FAERS Safety Report 8803313 (Version 2)
Quarter: 2013Q2

REPORT INFORMATION
  Report Type: Spontaneous
  Country: US (occurrence: US)
  Receive Date: 20120924
  Receipt Date: 20130531
  Transmission Date: 20140414
  Serious: Yes (Other)
  Sender: FDA-Public Use
  Company Number: US-BAYER-2012-096961

PATIENT
  Age: 31 Year
  Sex: Female
  Weight: 68.93 kg

DRUGS (1)
  1. MIRENA [Suspect]
     Indication: CONTRACEPTION
     Dosage: 20 MCG/24HR, CONT
     Route: 015
     Dates: start: 2008, end: 20120821

REACTIONS (6)
  - Pregnancy with contraceptive device [Recovered/Resolved]
  - Device expulsion [None]
  - Drug ineffective [None]
  - Menstrual disorder [None]
  - Caesarean section [None]
  - Shortened cervix [None]
